FAERS Safety Report 24896269 (Version 1)
Quarter: 2025Q1

REPORT INFORMATION
  Report Type: Report from Study
  Country: IT (occurrence: IT)
  Receive Date: 20250128
  Receipt Date: 20250128
  Transmission Date: 20250409
  Serious: Yes (Other)
  Sender: ELI LILLY AND COMPANY
  Company Number: IT-ELI_LILLY_AND_COMPANY-IT202501011757

PATIENT
  Age: 76 Year
  Sex: Female

DRUGS (2)
  1. RETEVMO [Suspect]
     Active Substance: SELPERCATINIB
     Indication: Medullary thyroid cancer
     Dosage: 120 MG, BID
     Route: 065
     Dates: start: 202303
  2. RETEVMO [Suspect]
     Active Substance: SELPERCATINIB
     Dosage: 80 MG, BID
     Route: 065
     Dates: start: 202307

REACTIONS (3)
  - Renal failure [Unknown]
  - Ascites [Recovering/Resolving]
  - Electrocardiogram QT prolonged [Unknown]
